FAERS Safety Report 21444715 (Version 2)
Quarter: 2022Q4

REPORT INFORMATION
  Report Type: Report from Study
  Country: None (occurrence: CA)
  Receive Date: 20221012
  Receipt Date: 20221111
  Transmission Date: 20230112
  Serious: Yes (Hospitalization)
  Sender: FDA-Public Use
  Company Number: CA-AKCEA THERAPEUTICS, INC.-2022IS003413

PATIENT
  Age: 72 Year
  Sex: Male

DRUGS (5)
  1. TEGSEDI [Suspect]
     Active Substance: INOTERSEN SODIUM
     Indication: Hereditary neuropathic amyloidosis
     Route: 058
  2. DEVICE [Suspect]
     Active Substance: DEVICE
  3. ELIQUIS [Concomitant]
     Active Substance: APIXABAN
     Route: 048
  4. MEGESTROL [Concomitant]
     Active Substance: MEGESTROL
     Route: 065
  5. ERGOCALCIFEROL [Concomitant]
     Active Substance: ERGOCALCIFEROL
     Route: 065

REACTIONS (53)
  - Cardiac amyloidosis [Not Recovered/Not Resolved]
  - Cardiac failure [Not Recovered/Not Resolved]
  - Disease progression [Not Recovered/Not Resolved]
  - Dizziness [Not Recovered/Not Resolved]
  - Gait inability [Not Recovered/Not Resolved]
  - Gastrointestinal haemorrhage [Not Recovered/Not Resolved]
  - Generalised oedema [Not Recovered/Not Resolved]
  - Haemoglobin decreased [Not Recovered/Not Resolved]
  - Hepatic function abnormal [Not Recovered/Not Resolved]
  - Incontinence [Not Recovered/Not Resolved]
  - Malaise [Not Recovered/Not Resolved]
  - Mucosal dryness [Not Recovered/Not Resolved]
  - Oxygen saturation decreased [Not Recovered/Not Resolved]
  - Pain [Not Recovered/Not Resolved]
  - Pallor [Not Recovered/Not Resolved]
  - Tongue dry [Not Recovered/Not Resolved]
  - Weight decreased [Not Recovered/Not Resolved]
  - Decreased appetite [Not Recovered/Not Resolved]
  - Anaemia [Not Recovered/Not Resolved]
  - Drug ineffective [Unknown]
  - Asthenia [Unknown]
  - Blood urine present [Unknown]
  - Chromaturia [Unknown]
  - Loss of personal independence in daily activities [Unknown]
  - Epistaxis [Unknown]
  - Fall [Unknown]
  - Skin discolouration [Unknown]
  - Hyperkeratosis [Unknown]
  - Pain of skin [Unknown]
  - Skin swelling [Unknown]
  - Skin warm [Unknown]
  - Venous occlusion [Unknown]
  - Blood creatine decreased [Unknown]
  - Emotional disorder [Unknown]
  - Eyelid ptosis [Unknown]
  - Gait disturbance [Unknown]
  - General physical health deterioration [Unknown]
  - Mobility decreased [Unknown]
  - Palliative care [Unknown]
  - Swelling [Unknown]
  - Erythema [Unknown]
  - Balance disorder [Unknown]
  - Diarrhoea [Unknown]
  - Dehydration [Unknown]
  - Dehydration [Unknown]
  - Somnolence [Unknown]
  - Cough [Unknown]
  - Dyspnoea [Unknown]
  - Fatigue [Unknown]
  - Rash [Unknown]
  - Peripheral swelling [Unknown]
  - Contusion [Unknown]
  - Nerve injury [Not Recovered/Not Resolved]
